FAERS Safety Report 12729569 (Version 9)
Quarter: 2022Q3

REPORT INFORMATION
  Report Type: Spontaneous
  Country: DE (occurrence: DE)
  Receive Date: 20160909
  Receipt Date: 20220809
  Transmission Date: 20221027
  Serious: Yes (Life-Threatening, Hospitalization, Other)
  Sender: FDA-Public Use
  Company Number: None

PATIENT
  Age: 65 Year
  Sex: Male
  Weight: 83 kg

DRUGS (10)
  1. EDURANT [Suspect]
     Active Substance: RILPIVIRINE HYDROCHLORIDE
     Indication: HIV infection
     Dosage: IN THE EVENING
     Route: 048
     Dates: start: 20160805
  2. TRIUMEQ [Suspect]
     Active Substance: ABACAVIR SULFATE\DOLUTEGRAVIR SODIUM\LAMIVUDINE
     Indication: HIV infection
     Dosage: ONE IN THE EVENING?1 DF, QD 50/600/300 MG
     Route: 048
     Dates: start: 20160805
  3. CANDESARTAN [Concomitant]
     Active Substance: CANDESARTAN
     Indication: Hypertension
     Route: 065
     Dates: start: 20160624
  4. SUMATRIPTAN SUCCINATE [Concomitant]
     Active Substance: SUMATRIPTAN SUCCINATE
     Indication: Migraine
     Dosage: SINCE MORE THAN 10 YEARS
     Route: 065
  5. GABAPENTIN [Concomitant]
     Active Substance: GABAPENTIN
     Indication: Product used for unknown indication
     Dosage: 100 MG, TID
     Route: 065
  6. PRAVASTATIN AL [Concomitant]
     Indication: Product used for unknown indication
     Dosage: HALF IN THE EVENING
     Route: 065
  7. GABAPENTIN [Concomitant]
     Active Substance: GABAPENTIN
     Indication: Product used for unknown indication
     Dosage: 100 MG TID
     Route: 065
  8. AMLODIPINE [Concomitant]
     Active Substance: AMLODIPINE BESYLATE
     Indication: Product used for unknown indication
     Route: 065
  9. HYDROCHLOROTHIAZIDE [Concomitant]
     Active Substance: HYDROCHLOROTHIAZIDE
     Indication: Product used for unknown indication
     Route: 065
  10. AMPHO-MORONAL [Concomitant]
     Active Substance: AMPHOTERICIN B
     Indication: Product used for unknown indication
     Dosage: 1 DF TID
     Route: 065

REACTIONS (20)
  - Cerebellar infarction [Not Recovered/Not Resolved]
  - Carotid artery stenosis [Unknown]
  - Cerebellar haemorrhage [Unknown]
  - Pneumonia [Unknown]
  - Quadrantanopia [Unknown]
  - Stenosis [Unknown]
  - Hypertensive heart disease [Unknown]
  - Body temperature increased [Unknown]
  - Balance disorder [Unknown]
  - Hyperlipidaemia [Unknown]
  - Vomiting [Unknown]
  - Vertigo [Unknown]
  - Nausea [Unknown]
  - Headache [Unknown]
  - Ataxia [Unknown]
  - Arterial occlusive disease [Unknown]
  - Cranial nerve disorder [Unknown]
  - Hyperhomocysteinaemia [Unknown]
  - Arteriosclerosis [Unknown]
  - Gait disturbance [Unknown]

NARRATIVE: CASE EVENT DATE: 20160830
